FAERS Safety Report 10040286 (Version 1)
Quarter: 2014Q1

REPORT INFORMATION
  Report Type: Spontaneous
  Country: FR (occurrence: FR)
  Receive Date: 20140327
  Receipt Date: 20140327
  Transmission Date: 20141002
  Serious: Yes (Hospitalization)
  Sender: FDA-Public Use
  Company Number: FR-ROCHE-1367379

PATIENT
  Age: 65 Year
  Sex: Female

DRUGS (6)
  1. AVASTIN [Suspect]
     Indication: OVARIAN CANCER
     Route: 042
     Dates: start: 20130402, end: 20130521
  2. TAXOL [Suspect]
     Indication: OVARIAN CANCER
     Route: 042
     Dates: start: 20130308, end: 20130521
  3. CARBOPLATIN [Suspect]
     Indication: OVARIAN CANCER
     Route: 042
     Dates: start: 20130308, end: 20130525
  4. EMEND [Suspect]
     Indication: OVARIAN CANCER
     Route: 048
     Dates: start: 20130308, end: 20130521
  5. ONDANSETRON [Suspect]
     Indication: PRODUCT USED FOR UNKNOWN INDICATION
     Route: 048
     Dates: start: 20130308, end: 20130521
  6. SOLU-MEDROL [Suspect]
     Indication: PRODUCT USED FOR UNKNOWN INDICATION
     Route: 042
     Dates: start: 20130308, end: 20130521

REACTIONS (6)
  - Dermatomyositis [Unknown]
  - Myalgia [Unknown]
  - Dysphagia [Unknown]
  - Blood creatine phosphokinase increased [Unknown]
  - Lymphopenia [Unknown]
  - Aspartate aminotransferase increased [Unknown]
